FAERS Safety Report 11232149 (Version 1)
Quarter: 2015Q3

REPORT INFORMATION
  Report Type: Spontaneous
  Country: US (occurrence: US)
  Receive Date: 20150701
  Receipt Date: 20150701
  Transmission Date: 20151125
  Serious: No
  Sender: FDA-Public Use
  Company Number: US-PFIZER INC-2015214511

PATIENT
  Age: 50 Year
  Sex: Female
  Weight: 79 kg

DRUGS (5)
  1. IBUPROFEN. [Concomitant]
     Active Substance: IBUPROFEN
     Dosage: UNK
  2. LYRICA [Suspect]
     Active Substance: PREGABALIN
     Indication: NEURALGIA
  3. LYRICA [Suspect]
     Active Substance: PREGABALIN
     Indication: SJOGREN^S SYNDROME
     Dosage: 400 MG DAILY (100MG-MORNING AND 5PM, 200MG BEDTIME)
     Dates: start: 2011, end: 201505
  4. LYRICA [Suspect]
     Active Substance: PREGABALIN
     Indication: NEUROPATHY PERIPHERAL
     Dosage: 150 MG DAILY (50MG IN THE MORNING AND 100MG AT NIGHT)
     Dates: start: 201505, end: 201505
  5. ADVIL [Concomitant]
     Active Substance: IBUPROFEN
     Dosage: UNK

REACTIONS (8)
  - Nerve injury [Not Recovered/Not Resolved]
  - Confusional state [Not Recovered/Not Resolved]
  - Dysstasia [Not Recovered/Not Resolved]
  - Product use issue [Unknown]
  - Pain [Not Recovered/Not Resolved]
  - Condition aggravated [Not Recovered/Not Resolved]
  - Vomiting [Unknown]
  - Hyperaesthesia [Not Recovered/Not Resolved]

NARRATIVE: CASE EVENT DATE: 201505
